FAERS Safety Report 21838380 (Version 1)
Quarter: 2023Q1

REPORT INFORMATION
  Report Type: Report from Study
  Country: US (occurrence: US)
  Receive Date: 20230109
  Receipt Date: 20230109
  Transmission Date: 20230418
  Serious: Yes (Other)
  Sender: FDA-Public Use
  Company Number: US-BAYER-2023A000273

PATIENT
  Age: 69 Year
  Sex: Female

DRUGS (1)
  1. STIVARGA [Suspect]
     Active Substance: REGORAFENIB
     Dosage: 160 MG, QD FOR 21 DAYS ON THEN 7 DAYS OFF
     Route: 048
     Dates: start: 20221202

REACTIONS (17)
  - Glossodynia [Unknown]
  - Feeding disorder [Unknown]
  - Walking aid user [None]
  - Fatigue [Unknown]
  - Hypersomnia [None]
  - Seizure [None]
  - Muscular weakness [None]
  - Dysphonia [Unknown]
  - Oropharyngeal pain [Unknown]
  - Dyspnoea [Unknown]
  - Hypotension [Unknown]
  - Dysphagia [None]
  - Dry skin [None]
  - Pain in extremity [None]
  - Skin lesion [None]
  - Impaired healing [None]
  - Feeling abnormal [None]
